FAERS Safety Report 19831124 (Version 1)
Quarter: 2021Q3

REPORT INFORMATION
  Report Type: Other
  Country: CA (occurrence: CA)
  Receive Date: 20210915
  Receipt Date: 20210915
  Transmission Date: 20211014
  Serious: Yes (Other)
  Sender: FDA-Public Use
  Company Number: CA-ROCHE-2909439

PATIENT
  Age: 10 Year
  Sex: Male

DRUGS (7)
  1. VENTOLIN [Concomitant]
     Active Substance: ALBUTEROL SULFATE
     Indication: PRODUCT USED FOR UNKNOWN INDICATION
     Dosage: 2 DF, PRN
     Route: 065
     Dates: start: 20110903
  2. XOLAIR [Suspect]
     Active Substance: OMALIZUMAB
     Indication: ASTHMA
     Route: 058
     Dates: start: 20161123
  3. SINGULAIR [Concomitant]
     Active Substance: MONTELUKAST SODIUM
     Indication: PRODUCT USED FOR UNKNOWN INDICATION
     Dosage: 1 DF, QD
     Route: 065
     Dates: start: 20141221
  4. REACTINE (CANADA) [Concomitant]
     Active Substance: CETIRIZINE HYDROCHLORIDE
     Indication: PRODUCT USED FOR UNKNOWN INDICATION
     Dosage: 1 DF, BID
     Route: 065
     Dates: start: 20160502
  5. AERIUS [Concomitant]
     Indication: PRODUCT USED FOR UNKNOWN INDICATION
     Dosage: 1 DF, BID
     Route: 065
     Dates: start: 20160131
  6. ADVAIR HFA [Concomitant]
     Active Substance: FLUTICASONE PROPIONATE\SALMETEROL XINAFOATE
     Indication: PRODUCT USED FOR UNKNOWN INDICATION
     Dosage: 2 DF, BID
     Route: 065
     Dates: start: 20141221
  7. ZADITEN [Concomitant]
     Active Substance: KETOTIFEN FUMARATE
     Indication: PRODUCT USED FOR UNKNOWN INDICATION
     Dosage: 1 DF, BID
     Route: 065
     Dates: start: 20160601

REACTIONS (30)
  - Atopy [Unknown]
  - Chest discomfort [Unknown]
  - Road traffic accident [Unknown]
  - Sleep apnoea syndrome [Unknown]
  - Dyspnoea [Unknown]
  - Vernal keratoconjunctivitis [Unknown]
  - Eosinophilic oesophagitis [Unknown]
  - Rhinitis [Unknown]
  - Swelling [Unknown]
  - Anaphylactic reaction [Unknown]
  - Choking [Unknown]
  - Cough [Unknown]
  - Lip swelling [Unknown]
  - Quality of life decreased [Unknown]
  - Asthma [Unknown]
  - Upper respiratory tract congestion [Unknown]
  - Eye irritation [Not Recovered/Not Resolved]
  - Dysphagia [Unknown]
  - Swollen tongue [Unknown]
  - Conjunctivitis allergic [Unknown]
  - Frustration tolerance decreased [Unknown]
  - Lacrimation increased [Unknown]
  - Stress [Unknown]
  - Eczema [Unknown]
  - Discomfort [Unknown]
  - Hypersensitivity [Unknown]
  - Insomnia [Unknown]
  - Food allergy [Unknown]
  - Conjunctival hyperaemia [Unknown]
  - Wheezing [Unknown]

NARRATIVE: CASE EVENT DATE: 202010
